FAERS Safety Report 20832014 (Version 1)
Quarter: 2022Q2

REPORT INFORMATION
  Report Type: 
  Country: None (occurrence: None)
  Receive Date: 20220516
  Receipt Date: 20220516
  Transmission Date: 20220721
  Serious: No
  Sender: FDA-Public Use
  Company Number: CA-ROCHE-3087279

PATIENT
  Age: 35 Year

DRUGS (1)
  1. OCREVUS [Suspect]
     Active Substance: OCRELIZUMAB
     Dosage: THEN 600 MG EVERY 6 MONTHS
     Dates: start: 20210408

REACTIONS (4)
  - SARS-CoV-2 test positive [None]
  - Sinusitis [None]
  - Gastroenteritis [None]
  - Influenza [None]

NARRATIVE: CASE EVENT DATE: 20220218
